FAERS Safety Report 6355704-0 (Version None)
Quarter: 2009Q3

REPORT INFORMATION
  Report Type: 
  Country: None (occurrence: None)
  Receive Date: 20090910
  Receipt Date: 20090902
  Transmission Date: 20100115
  Serious: Yes (Other)
  Sender: FDA-Public Use
  Company Number: 2009SP023816

PATIENT
  Age: 32 Year
  Sex: 0

DRUGS (5)
  1. NOXAFIL [Suspect]
     Indication: MENINGITIS CRYPTOCOCCAL
     Dosage: PO
     Route: 048
     Dates: start: 20090828
  2. STOCRIN [Concomitant]
  3. EPIVIR [Concomitant]
  4. ZERIT [Concomitant]
  5. AMBISOME [Concomitant]

REACTIONS (2)
  - CONDITION AGGRAVATED [None]
  - DRUG INEFFECTIVE [None]
